FAERS Safety Report 4549506-5 (Version None)
Quarter: 2005Q1

REPORT INFORMATION
  Report Type: 
  Country: None (occurrence: None)
  Receive Date: 20050110
  Receipt Date: 20050110
  Transmission Date: 20050727
  Serious: Yes (Other)
  Sender: FDA-Public Use
  Company Number: None

PATIENT
  Age: 41 Year
  Sex: Female
  Weight: 54 kg

DRUGS (4)
  1. CLINDAMYCIN HCL [Suspect]
     Indication: ORAL SURGERY
     Dosage: 1.8 G , 450 MG Q6H, ORAL
     Route: 048
     Dates: start: 20041002, end: 20041002
  2. CLINDAMYCIN HCL [Suspect]
     Indication: PROPHYLAXIS
     Dosage: 1.8 G , 450 MG Q6H, ORAL
     Route: 048
     Dates: start: 20041002, end: 20041002
  3. PENICILLIN-VK [Suspect]
     Indication: ORAL SURGERY
     Dosage: 2 G, 500 MG QID, ORAL
     Route: 048
     Dates: start: 20040929, end: 20041002
  4. PENICILLIN-VK [Suspect]
     Indication: PROPHYLAXIS
     Dosage: 2 G, 500 MG QID, ORAL
     Route: 048
     Dates: start: 20040929, end: 20041002

REACTIONS (1)
  - RASH [None]
